FAERS Safety Report 10044303 (Version 1)
Quarter: 2014Q1

REPORT INFORMATION
  Report Type: Spontaneous
  Country: DE (occurrence: DE)
  Receive Date: 20140328
  Receipt Date: 20140328
  Transmission Date: 20141002
  Serious: Yes (Death, Other)
  Sender: FDA-Public Use
  Company Number: DE-AMGEN-DEUSP2014021191

PATIENT
  Age: 71 Year
  Sex: Female

DRUGS (5)
  1. XGEVA [Suspect]
     Indication: METASTASES TO BONE
     Dosage: 120 MG, Q4WK
     Route: 065
  2. AVASTIN /00848101/ [Suspect]
     Indication: BREAST CANCER METASTATIC
     Dosage: 15 MG, Q3WK
     Route: 015
     Dates: start: 20131121, end: 20131121
  3. PACLITAXEL ALBUMIN [Suspect]
     Indication: BREAST CANCER METASTATIC
     Dosage: 100 MG/M2, QWK
     Route: 042
     Dates: start: 20131121, end: 20131121
  4. KEVATRIL [Concomitant]
     Indication: PROPHYLAXIS OF NAUSEA AND VOMITING
     Dosage: 1 MG, QWK
     Route: 065
     Dates: start: 20131121, end: 20131121
  5. DEXAMETHASONE [Concomitant]
     Indication: PROPHYLAXIS OF NAUSEA AND VOMITING
     Dosage: 16 MG, QWK
     Route: 042
     Dates: start: 20131121, end: 20131121

REACTIONS (5)
  - Coma hepatic [Fatal]
  - Skin necrosis [Fatal]
  - Sepsis [Fatal]
  - Impaired healing [Unknown]
  - Pruritus [Unknown]
